FAERS Safety Report 6362247-7 (Version None)
Quarter: 2009Q3

REPORT INFORMATION
  Report Type: 
  Country: None (occurrence: None)
  Receive Date: 20090918
  Receipt Date: 20090622
  Transmission Date: 20100115
  Serious: No
  Sender: FDA-Public Use
  Company Number: US-ABBOTT-09P-163-0581370-00

PATIENT
  Sex: Female

DRUGS (3)
  1. HUMIRA [Suspect]
     Indication: PSORIASIS
     Route: 058
     Dates: start: 20090615, end: 20090615
  2. HUMIRA [Suspect]
     Route: 058
     Dates: start: 20090622
  3. NEURONTIN [Concomitant]
     Indication: CONVULSION
     Dosage: UNKNOWN

REACTIONS (6)
  - DRUG DOSE OMISSION [None]
  - INJECTION SITE HAEMATOMA [None]
  - INJECTION SITE PAIN [None]
  - PROCEDURAL COMPLICATION [None]
  - RASH [None]
  - RASH PAPULAR [None]
